FAERS Safety Report 8187808-4 (Version None)
Quarter: 2012Q1

REPORT INFORMATION
  Report Type: 
  Country: None (occurrence: None)
  Receive Date: 20120306
  Receipt Date: 20120225
  Transmission Date: 20120608
  Serious: Yes (Hospitalization)
  Sender: FDA-Public Use
  Company Number: CN-SANOFI-AVENTIS-2012SA013763

PATIENT
  Age: 56 Year
  Sex: Female
  Weight: 158 kg

DRUGS (6)
  1. CARBOPLATIN [Suspect]
     Dosage: FORM: VIAL
     Route: 042
     Dates: start: 20100729
  2. DOCETAXEL [Suspect]
     Dosage: FORM: VIAL
     Route: 042
     Dates: start: 20100729
  3. DOCETAXEL [Suspect]
     Dosage: FORM: VIAL
     Route: 042
     Dates: start: 20100729
  4. BEVACIZUMAB [Suspect]
     Dosage: FORM: VIAL, TOTAL DOSE: 1000MG
     Route: 042
     Dates: start: 20100729
  5. TRASTUZUMAB [Suspect]
     Dosage: FORM: VIALLOADING DOSE
     Route: 042
     Dates: start: 20100729
  6. TRASTUZUMAB [Suspect]
     Dosage: FORM: VIAL, TOTAL DOSE: 420MG
     Route: 042

REACTIONS (1)
  - URINARY RETENTION [None]
